FAERS Safety Report 8363739-1 (Version None)
Quarter: 2012Q2

REPORT INFORMATION
  Report Type: 
  Country: None (occurrence: None)
  Receive Date: 20120516
  Receipt Date: 20120507
  Transmission Date: 20120825
  Serious: Yes (Other)
  Sender: FDA-Public Use
  Company Number: CA-JNJFOC-20120207562

PATIENT
  Sex: Female
  Weight: 71 kg

DRUGS (19)
  1. REMICADE [Suspect]
     Indication: ANKYLOSING SPONDYLITIS
     Route: 042
     Dates: start: 20110726
  2. CALCIUM [Concomitant]
     Route: 065
  3. LASIX [Concomitant]
     Route: 065
  4. CLONAZEPAM [Concomitant]
     Route: 065
  5. SLOW-K [Concomitant]
  6. REMICADE [Suspect]
     Indication: ARTHRITIS
     Route: 042
     Dates: start: 20110726
  7. FENTANYL-100 [Concomitant]
     Route: 065
  8. FOLIC ACID [Concomitant]
     Route: 065
  9. BENADRYL [Concomitant]
     Indication: PREMEDICATION
     Route: 065
  10. ESOMEPRAZOLE MAGNESIUM [Concomitant]
     Route: 065
  11. SOLU-CORTEF [Concomitant]
     Indication: PREMEDICATION
     Route: 065
  12. TYLENOL (CAPLET) [Concomitant]
     Indication: PREMEDICATION
     Route: 042
  13. CYMBALTA [Concomitant]
     Route: 065
  14. ALLOPURINOL [Concomitant]
     Route: 065
  15. LYRICA [Concomitant]
     Route: 065
  16. METHOTREXATE [Concomitant]
     Route: 065
  17. SPIROTONE [Concomitant]
     Route: 065
  18. VITAMIN B-12 [Concomitant]
     Route: 065
  19. VITAMIN D [Concomitant]
     Dosage: 3000 UNITS
     Route: 065

REACTIONS (3)
  - STERNAL FRACTURE [None]
  - FIBROMYALGIA [None]
  - FALL [None]
